FAERS Safety Report 4817722-0 (Version None)
Quarter: 2005Q3

REPORT INFORMATION
  Report Type: 
  Country: None (occurrence: None)
  Receive Date: 20050929
  Receipt Date: 20050805
  Transmission Date: 20060218
  Serious: No
  Sender: FDA-Public Use
  Company Number: 05P-163-0307675-00

PATIENT
  Age: 68 Year
  Sex: Female
  Weight: 87.5442 kg

DRUGS (5)
  1. HUMIRA [Suspect]
     Indication: RHEUMATOID ARTHRITIS
     Dosage: 40 MG, 1 IN 2 WK, SUBCUTANEOUS
     Route: 058
     Dates: start: 20050708
  2. COUMADIN [Concomitant]
  3. PREDNISONE [Concomitant]
  4. DIOVAN [Concomitant]
  5. SOTALOL HCL [Concomitant]

REACTIONS (4)
  - ARTHRALGIA [None]
  - FAECES DISCOLOURED [None]
  - OEDEMA PERIPHERAL [None]
  - URINARY TRACT INFECTION [None]
